FAERS Safety Report 8603022 (Version 3)
Quarter: 2013Q1

REPORT INFORMATION
  Report Type: Spontaneous
  Country: FR (occurrence: None)
  Receive Date: 20120525
  Receipt Date: 20130103
  Transmission Date: 20140127
  Serious: Yes (Other)
  Sender: FDA-Public Use
  Company Number: 1290528

PATIENT
  Age: 56 Year
  Sex: Male
  Weight: 82 kg

DRUGS (12)
  1. CARBOPLATIN [Suspect]
     Indication: NASAL SINUS CANCER
     Dosage: 700 MG, ACCORDING TO COURSE,  INTRAVENOUS (NOT OTHERWISE SPECIFIED)
     Route: 042
     Dates: start: 20120208, end: 20120208
  2. PACLITAXEL [Suspect]
     Indication: NASAL SINUS CANCER
     Dosage: 348 MG, ACCORDING TO COURSE, INTRAVENOUS (NOT OTHERWISE SPECIFIED)
     Route: 041
     Dates: start: 20120208, end: 20120208
  3. METFORMIN HYDROCHLORIDE [Concomitant]
  4. DUOPLAVIN [Concomitant]
  5. DIAMICRON [Concomitant]
  6. SELOKEN [Concomitant]
  7. TAHOR [Concomitant]
  8. EMEND /01627301/ [Concomitant]
  9. ZOPHREN /00955301/ [Concomitant]
  10. RANITIDINE [Concomitant]
  11. SOLUMEDROL [Concomitant]
  12. NEULASTA [Concomitant]

REACTIONS (2)
  - Paraesthesia [None]
  - Myalgia [None]
